FAERS Safety Report 6747615-3 (Version None)
Quarter: 2010Q2

REPORT INFORMATION
  Report Type: 
  Country: None (occurrence: None)
  Receive Date: 20100528
  Receipt Date: 20100517
  Transmission Date: 20101027
  Serious: Yes (Hospitalization, Other)
  Sender: FDA-Public Use
  Company Number: PHHY2010FR32311

PATIENT
  Sex: Male

DRUGS (12)
  1. TAREG [Suspect]
     Indication: HYPERTENSION
     Dosage: 40 MG, QD
     Route: 048
     Dates: end: 20090201
  2. PRAXILENE [Suspect]
     Indication: ARTERIOSCLEROSIS
     Dosage: 200 MG, TID
     Dates: end: 20090201
  3. BUMEX [Suspect]
     Indication: HYPERTENSION
     Dosage: 5 MG, QD
     Dates: end: 20090201
  4. CALCIPARINE [Suspect]
     Dosage: 2 DF, QD
     Dates: start: 20090127
  5. ROCEPHIN [Suspect]
     Indication: LUNG INFECTION
     Dosage: 1 G, QD
     Dates: start: 20090119, end: 20090201
  6. TAVANIC [Suspect]
     Indication: LUNG INFECTION
     Dosage: 500 MG, QD
     Dates: start: 20090119, end: 20090201
  7. ADVIL LIQUI-GELS [Suspect]
     Dosage: UNK
     Dates: start: 20090127, end: 20090201
  8. PRAVASTATIN SODIUM [Suspect]
     Dosage: 20 MG, QD
     Dates: end: 20090201
  9. KARDEGIC [Suspect]
     Indication: ARTERIOSCLEROSIS
     Dosage: 75 MG, QD
     Dates: end: 20090129
  10. PLAVIX [Suspect]
     Indication: ARTERIOSCLEROSIS
     Dosage: 75 MG, QD
  11. ADANCOR [Concomitant]
     Dosage: 20 MG, QD
  12. INSULATARD [Concomitant]
     Indication: TYPE 1 DIABETES MELLITUS
     Dosage: 28 IU, QD

REACTIONS (14)
  - ALTERED STATE OF CONSCIOUSNESS [None]
  - CARDIO-RESPIRATORY DISTRESS [None]
  - CEREBRAL INFARCTION [None]
  - CEREBROVASCULAR ACCIDENT [None]
  - CHRONIC OBSTRUCTIVE PULMONARY DISEASE [None]
  - CIRCULATORY COLLAPSE [None]
  - DISTURBANCE IN ATTENTION [None]
  - GASTRIC ULCER HAEMORRHAGE [None]
  - GASTROINTESTINAL HAEMORRHAGE [None]
  - HAEMATEMESIS [None]
  - LUNG INFECTION [None]
  - MELAENA [None]
  - OESOPHAGITIS ULCERATIVE [None]
  - TACHYCARDIA [None]
